FAERS Safety Report 26174878 (Version 1)
Quarter: 2025Q4

REPORT INFORMATION
  Report Type: Spontaneous
  Country: US (occurrence: US)
  Receive Date: 20251218
  Receipt Date: 20251218
  Transmission Date: 20260118
  Serious: Yes (Other)
  Sender: TEVA
  Company Number: US-TEVA-VS-3402317

PATIENT
  Age: 49 Year
  Sex: Female

DRUGS (6)
  1. OCTREOTIDE [Suspect]
     Active Substance: OCTREOTIDE
     Indication: Pituitary tumour benign
     Route: 065
  2. PEGVISOMANT [Suspect]
     Active Substance: PEGVISOMANT
     Indication: Pituitary tumour benign
     Route: 065
  3. CABERGOLINE [Suspect]
     Active Substance: CABERGOLINE
     Indication: Pituitary tumour benign
     Route: 065
     Dates: start: 2018
  4. LANREOTIDE [Suspect]
     Active Substance: LANREOTIDE
     Indication: Pituitary tumour benign
     Route: 065
     Dates: start: 2018
  5. PASIREOTIDE [Suspect]
     Active Substance: PASIREOTIDE
     Indication: Pituitary tumour benign
     Route: 065
  6. INSULIN NOS [Suspect]
     Active Substance: INSULIN NOS
     Indication: Diabetes mellitus
     Route: 065
     Dates: start: 2018

REACTIONS (3)
  - Hyperglycaemia [Unknown]
  - Treatment noncompliance [Unknown]
  - Drug ineffective [Unknown]
